FAERS Safety Report 13615418 (Version 4)
Quarter: 2018Q3

REPORT INFORMATION
  Report Type: Spontaneous
  Country: US (occurrence: US)
  Receive Date: 20170606
  Receipt Date: 20180904
  Transmission Date: 20181010
  Serious: No
  Sender: FDA-Public Use
  Company Number: US-PFIZER INC-2016305780

PATIENT
  Age: 45 Year
  Sex: Female
  Weight: 113.38 kg

DRUGS (8)
  1. LYRICA [Suspect]
     Active Substance: PREGABALIN
     Indication: EPILEPSY
     Dosage: 200MG THREE TIMES A DAY AD 100MG AT NIGHT
     Route: 048
     Dates: start: 201003
  2. PRIMIDONE. [Concomitant]
     Active Substance: PRIMIDONE
     Dosage: UNK
  3. LYRICA [Suspect]
     Active Substance: PREGABALIN
     Indication: SEIZURE
     Dosage: 700 MG, DAILY(TOTAL 200 MG THREE TIMES A DAY AND 100 MG AT NIGHT)
     Route: 048
     Dates: start: 201705, end: 20170530
  4. LYRICA [Suspect]
     Active Substance: PREGABALIN
     Dosage: 200 MG, 3X/DAY (1 CAPSULE BY MOUTH THREE TIMES DAILY)
     Route: 048
  5. VIMPAT [Concomitant]
     Active Substance: LACOSAMIDE
     Dosage: UNK
  6. SERTRALINE [Concomitant]
     Active Substance: SERTRALINE HYDROCHLORIDE
     Dosage: UNK
  7. TOPIRAMATE. [Concomitant]
     Active Substance: TOPIRAMATE
     Dosage: UNK
  8. LYRICA [Suspect]
     Active Substance: PREGABALIN
     Indication: FOCAL DYSCOGNITIVE SEIZURES
     Dosage: 200MG THREE TIMES A DAY AND 100MG AT NIGHT
     Route: 048
     Dates: start: 201003

REACTIONS (4)
  - Dizziness [Recovered/Resolved]
  - Feeling abnormal [Recovered/Resolved]
  - Prescribed overdose [Unknown]
  - Amnesia [Unknown]

NARRATIVE: CASE EVENT DATE: 20100303
